FAERS Safety Report 5657397-4 (Version None)
Quarter: 2008Q1

REPORT INFORMATION
  Report Type: 
  Country: None (occurrence: None)
  Receive Date: 20080310
  Receipt Date: 20080227
  Transmission Date: 20080703
  Serious: Yes (Other)
  Sender: FDA-Public Use
  Company Number: US-PFIZER INC-2007039717

PATIENT

DRUGS (3)
  1. LYRICA [Suspect]
     Indication: CONVULSION
  2. GEODON [Suspect]
  3. ZONEGRAN [Concomitant]
     Indication: CONVULSION

REACTIONS (2)
  - OEDEMA [None]
  - WEIGHT INCREASED [None]
